FAERS Safety Report 20056902 (Version 2)
Quarter: 2021Q4

REPORT INFORMATION
  Report Type: Spontaneous
  Country: CH (occurrence: CH)
  Receive Date: 20211111
  Receipt Date: 20211202
  Transmission Date: 20220303
  Serious: Yes (Other)
  Sender: FDA-Public Use
  Company Number: CH-002147023-NVSC2021CH204893

PATIENT
  Sex: Female

DRUGS (1)
  1. AIMOVIG [Suspect]
     Active Substance: ERENUMAB-AOOE
     Indication: Migraine
     Dosage: 225 MILLIGRAM, QMO
     Route: 065
     Dates: start: 202012

REACTIONS (2)
  - Amenorrhoea [Not Recovered/Not Resolved]
  - Hypogonadism female [Not Recovered/Not Resolved]

NARRATIVE: CASE EVENT DATE: 20210101
